FAERS Safety Report 21104259 (Version 2)
Quarter: 2022Q4

REPORT INFORMATION
  Report Type: Spontaneous
  Country: US (occurrence: US)
  Receive Date: 20220720
  Receipt Date: 20221012
  Transmission Date: 20230113
  Serious: Yes (Hospitalization)
  Sender: FDA-Public Use
  Company Number: US-BRISTOL-MYERS SQUIBB COMPANY-2022-072607

PATIENT
  Age: 81 Year
  Sex: Male
  Weight: 74.6 kg

DRUGS (2)
  1. REVLIMID [Suspect]
     Active Substance: LENALIDOMIDE
     Indication: Plasma cell myeloma
     Dosage: 1 CAPSULE DAILY
     Route: 048
     Dates: start: 20170907
  2. REVLIMID [Suspect]
     Active Substance: LENALIDOMIDE
     Dosage: DAILY DAYS 1-28 EVERY 28 DAYS
     Route: 048
     Dates: start: 20170907, end: 20220925

REACTIONS (2)
  - Urinary tract infection [Unknown]
  - Gastrointestinal disorder [Unknown]

NARRATIVE: CASE EVENT DATE: 20220930
